FAERS Safety Report 8167425-2 (Version None)
Quarter: 2012Q1

REPORT INFORMATION
  Report Type: 
  Country: None (occurrence: None)
  Receive Date: 20120103
  Receipt Date: 20111008
  Transmission Date: 20120608
  Serious: No
  Sender: FDA-Public Use
  Company Number: AE-2011-002179

PATIENT
  Age: 37 Year
  Sex: Female
  Weight: 81.6475 kg

DRUGS (4)
  1. PROVERA [Concomitant]
  2. INCIVEK [Suspect]
     Dosage: 3 IN 1 D), ORAL
     Route: 048
     Dates: start: 20110921
  3. PEGASYS [Concomitant]
  4. RIBAVIRIN [Concomitant]

REACTIONS (3)
  - RASH [None]
  - DRY MOUTH [None]
  - DYSGEUSIA [None]
